FAERS Safety Report 6501894-6 (Version None)
Quarter: 2009Q4

REPORT INFORMATION
  Report Type: 
  Country: None (occurrence: None)
  Receive Date: 20091216
  Receipt Date: 20091205
  Transmission Date: 20100525
  Serious: Yes (Hospitalization)
  Sender: FDA-Public Use
  Company Number: PHHY2009MX53788

PATIENT
  Age: 76 Year
  Sex: Male

DRUGS (3)
  1. DIOVAN HCT [Suspect]
     Indication: HYPERTENSION
     Dosage: 1 TABLET (160/25 MG) PER DAY
  2. CLOPIDOGREL [Concomitant]
  3. CERMIUM [Concomitant]

REACTIONS (1)
  - CEREBRAL HAEMORRHAGE [None]
